FAERS Safety Report 21506945 (Version 5)
Quarter: 2024Q1

REPORT INFORMATION
  Report Type: Spontaneous
  Country: US (occurrence: US)
  Receive Date: 20221026
  Receipt Date: 20240307
  Transmission Date: 20240409
  Serious: Yes (Other)
  Sender: FDA-Public Use
  Company Number: US-SUN PHARMACEUTICAL INDUSTRIES LTD-2022R1-359575

PATIENT
  Age: 18 Year
  Sex: Female

DRUGS (1)
  1. ABSORICA LD [Suspect]
     Active Substance: ISOTRETINOIN
     Indication: Product used for unknown indication
     Dosage: UNK
     Route: 065
     Dates: start: 20220709, end: 20221014

REACTIONS (4)
  - Abortion induced [Unknown]
  - Exposure during pregnancy [Unknown]
  - Hyperhidrosis [Not Recovered/Not Resolved]
  - Malaise [Recovered/Resolved]

NARRATIVE: CASE EVENT DATE: 20221011
